FAERS Safety Report 24262702 (Version 1)
Quarter: 2024Q3

REPORT INFORMATION
  Report Type: Spontaneous
  Country: US (occurrence: US)
  Receive Date: 20240829
  Receipt Date: 20240829
  Transmission Date: 20241016
  Serious: No
  Sender: TEVA
  Company Number: US-TEVA-VS-3232212

PATIENT
  Age: 84 Year
  Sex: Male
  Weight: 73.94 kg

DRUGS (2)
  1. AUSTEDO [Suspect]
     Active Substance: DEUTETRABENAZINE
     Indication: Product used for unknown indication
     Dosage: TWO TABLETS BY MOUTH TWICE DAILY FOR A TOTAL DAILY DOSE OF 48 MG
     Route: 048
  2. AUSTEDO [Suspect]
     Active Substance: DEUTETRABENAZINE
     Indication: Product used for unknown indication
     Dosage: 6 MG AND 12 MG AT A DOSE OF ^TAKE 1 12 MG TABLET ALONG WITH 1 6 MG TABLET AT THE SAME TIME FOR A ...
     Route: 048

REACTIONS (3)
  - Depression [Not Recovered/Not Resolved]
  - Product use issue [Unknown]
  - Drug intolerance [Unknown]

NARRATIVE: CASE EVENT DATE: 20240808
